FAERS Safety Report 6646041-5 (Version None)
Quarter: 2010Q1

REPORT INFORMATION
  Report Type: 
  Country: None (occurrence: None)
  Receive Date: 20100323
  Receipt Date: 20100311
  Transmission Date: 20100710
  Serious: Yes (Hospitalization, Other)
  Sender: FDA-Public Use
  Company Number: PL-JNJFOC-20100304189

PATIENT
  Age: 18 Year
  Sex: Female
  Weight: 42 kg

DRUGS (9)
  1. INFLIXIMAB [Suspect]
     Indication: CROHN'S DISEASE
     Dosage: BY THIS DATE 31INFUSIONS TOTAL
     Route: 042
  2. INFLIXIMAB [Suspect]
     Route: 042
  3. INFLIXIMAB [Suspect]
     Dosage: 3 TIMES (0,2,6 WEEKS)
     Route: 042
  4. MESALAZINE [Concomitant]
     Indication: CROHN'S DISEASE
  5. MESALAZINE [Concomitant]
  6. AZATHIOPRINE [Concomitant]
     Indication: CROHN'S DISEASE
  7. CORTICOSTEROIDS [Concomitant]
     Indication: CROHN'S DISEASE
  8. BUDESONIDE [Concomitant]
     Indication: CROHN'S DISEASE
  9. PREDNISONE [Concomitant]
     Indication: CROHN'S DISEASE

REACTIONS (7)
  - CROHN'S DISEASE [None]
  - FEMALE GENITAL TRACT FISTULA [None]
  - INTESTINAL FISTULA [None]
  - MICROCYTIC ANAEMIA [None]
  - PERIRECTAL ABSCESS [None]
  - THERAPEUTIC RESPONSE DECREASED [None]
  - WEIGHT DECREASED [None]
